FAERS Safety Report 4965133-X (Version None)
Quarter: 2006Q1

REPORT INFORMATION
  Report Type: 
  Country: None (occurrence: None)
  Receive Date: 20060207
  Receipt Date: 20050401
  Transmission Date: 20060701
  Serious: Yes (Other)
  Sender: FDA-Public Use
  Company Number: HQWYE695905APR05

PATIENT
  Sex: Female

DRUGS (1)
  1. NORPLANT SYSTEM [Suspect]
     Indication: CONTRACEPTION
     Dosage: 6 CAPSULES, SUBCUTANEOUS
     Route: 058
     Dates: start: 20000101, end: 20050331

REACTIONS (3)
  - DRUG INEFFECTIVE [None]
  - PREGNANCY TEST FALSE POSITIVE [None]
  - UNINTENDED PREGNANCY [None]
